FAERS Safety Report 8069267-5 (Version None)
Quarter: 2012Q1

REPORT INFORMATION
  Report Type: 
  Country: None (occurrence: None)
  Receive Date: 20120125
  Receipt Date: 20120120
  Transmission Date: 20120608
  Serious: Yes (Hospitalization)
  Sender: FDA-Public Use
  Company Number: JP-JNJFOC-20110204570

PATIENT
  Sex: Male
  Weight: 88 kg

DRUGS (9)
  1. SELTOUCH [Concomitant]
     Indication: RHEUMATOID ARTHRITIS
     Route: 062
     Dates: start: 20100823
  2. FAMOTIDINE [Concomitant]
     Indication: GASTROOESOPHAGEAL REFLUX DISEASE
     Route: 048
     Dates: start: 20081114
  3. LISINOPRIL [Concomitant]
     Indication: HYPERTENSION
     Route: 048
     Dates: start: 20081114
  4. GOLIMUMAB [Suspect]
     Route: 058
     Dates: start: 20110121
  5. AZULFIDINE [Concomitant]
     Indication: RHEUMATOID ARTHRITIS
     Route: 048
     Dates: start: 20100723
  6. RHEUMATREX [Suspect]
     Indication: RHEUMATOID ARTHRITIS
     Route: 048
     Dates: start: 20080702
  7. PREDNISOLONE [Suspect]
     Indication: RHEUMATOID ARTHRITIS
     Route: 048
     Dates: start: 20100824
  8. GOLIMUMAB [Suspect]
     Indication: RHEUMATOID ARTHRITIS
     Route: 058
     Dates: start: 20081205
  9. AMLODIPINE [Concomitant]
     Indication: HYPERTENSION
     Route: 048
     Dates: start: 20081114

REACTIONS (1)
  - TESTICULAR NEOPLASM [None]
